FAERS Safety Report 5514504-1 (Version None)
Quarter: 2007Q4

REPORT INFORMATION
  Report Type: 
  Country: None (occurrence: None)
  Receive Date: 20071113
  Receipt Date: 20071113
  Transmission Date: 20080405
  Serious: Yes (Hospitalization)
  Sender: FDA-Public Use
  Company Number: A0694162A

PATIENT
  Age: 43 Year
  Sex: Female

DRUGS (1)
  1. ALLI [Suspect]
     Dates: start: 20071006, end: 20071007

REACTIONS (5)
  - BLOOD PRESSURE DECREASED [None]
  - DEHYDRATION [None]
  - DIARRHOEA [None]
  - URTICARIA [None]
  - VOMITING [None]
